FAERS Safety Report 11858271 (Version 2)
Quarter: 2016Q1

REPORT INFORMATION
  Report Type: Report from Study
  Country: KR (occurrence: KR)
  Receive Date: 20151222
  Receipt Date: 20160215
  Transmission Date: 20160526
  Serious: Yes (Hospitalization)
  Sender: FDA-Public Use
  Company Number: KR-GLAXOSMITHKLINE-KR2015168712

PATIENT
  Age: 69 Year
  Sex: Male
  Weight: 58 kg

DRUGS (23)
  1. FLIXOTIDE [Suspect]
     Active Substance: FLUTICASONE PROPIONATE
     Indication: CHRONIC OBSTRUCTIVE PULMONARY DISEASE
     Dosage: 2 ML, QID
     Route: 055
     Dates: start: 20151125, end: 20151125
  2. BANAN [Suspect]
     Active Substance: CEFPODOXIME PROXETIL
     Indication: CHRONIC OBSTRUCTIVE PULMONARY DISEASE
     Dosage: 200 MG, BID
     Route: 048
     Dates: start: 20151203, end: 20151210
  3. LEVOPLUS (FIBER + LACTITOL + LACTULOSE + MANNITOL) [Suspect]
     Active Substance: ACACIA\INULIN\LACTITOL\LACTULOSE\MANNITOL
     Indication: CHRONIC OBSTRUCTIVE PULMONARY DISEASE
     Dosage: 750 MG, 1D
     Route: 048
     Dates: start: 20151204, end: 20151210
  4. BLINDED MEPOLIZUMAB [Suspect]
     Active Substance: MEPOLIZUMAB
     Indication: CHRONIC OBSTRUCTIVE PULMONARY DISEASE
     Dosage: UNK, CYC
     Route: 058
     Dates: start: 20141016, end: 20150914
  5. CRAVIT [Suspect]
     Active Substance: LEVOFLOXACIN
     Indication: CHRONIC OBSTRUCTIVE PULMONARY DISEASE
     Dosage: 750 MG, SINGLE
     Route: 048
     Dates: start: 20151125, end: 20151203
  6. METHYLON [Suspect]
     Active Substance: METHYLPREDNISOLONE
     Indication: CHRONIC OBSTRUCTIVE PULMONARY DISEASE
     Dosage: 24 MG, SINGLE
     Route: 048
     Dates: start: 20151204, end: 20151208
  7. BLINDED MEPOLIZUMAB [Suspect]
     Active Substance: MEPOLIZUMAB
     Indication: CHRONIC OBSTRUCTIVE PULMONARY DISEASE
     Dosage: UNK, CYC
     Route: 058
     Dates: start: 20141016, end: 20150914
  8. PULMICAN NEBULIZER [Suspect]
     Active Substance: BUDESONIDE
     Indication: CHRONIC OBSTRUCTIVE PULMONARY DISEASE
     Dosage: 2 ML, QD
     Route: 055
     Dates: start: 20151125, end: 20151125
  9. VENTOLIN [Suspect]
     Active Substance: ALBUTEROL SULFATE
     Indication: CHRONIC OBSTRUCTIVE PULMONARY DISEASE
     Dosage: 2 ML, 5D
     Route: 055
     Dates: start: 20151125, end: 20151125
  10. CEFOLATAM [Suspect]
     Active Substance: CEFOPERAZONE SODIUM\SULBACTAM SODIUM
     Dosage: 1 G, QD
     Route: 042
     Dates: start: 20151125, end: 20151125
  11. VENTOLIN [Suspect]
     Active Substance: ALBUTEROL SULFATE
     Dosage: 2 MG, QID
     Route: 055
     Dates: start: 20151126, end: 20151129
  12. OXYGEN. [Suspect]
     Active Substance: OXYGEN
     Indication: CHRONIC OBSTRUCTIVE PULMONARY DISEASE
     Dosage: 4 L/MIN, CO
     Route: 045
     Dates: start: 20151201, end: 20151203
  13. SMOFKABIVEN [Suspect]
     Active Substance: UNSPECIFIED INGREDIENT
     Indication: NUTRITIONAL SUPPLEMENTATION
     Route: 042
     Dates: start: 20151125, end: 20151125
  14. SOLU-MEDROL [Suspect]
     Active Substance: METHYLPREDNISOLONE SODIUM SUCCINATE
     Indication: CHRONIC OBSTRUCTIVE PULMONARY DISEASE
     Dosage: 125 MG, BID
     Route: 042
     Dates: start: 20151125, end: 20151203
  15. ATROVENT UDV [Suspect]
     Active Substance: IPRATROPIUM BROMIDE
     Indication: CHRONIC OBSTRUCTIVE PULMONARY DISEASE
     Dosage: 2 ML, 5D
     Route: 055
     Dates: start: 20151125, end: 20151125
  16. CEFOLATAM [Suspect]
     Active Substance: CEFOPERAZONE SODIUM\SULBACTAM SODIUM
     Indication: CHRONIC OBSTRUCTIVE PULMONARY DISEASE
     Dosage: 1 G, BID
     Route: 042
     Dates: start: 20151126, end: 20151203
  17. FLIXOTIDE [Suspect]
     Active Substance: FLUTICASONE PROPIONATE
     Dosage: 2 ML, BID
     Route: 055
     Dates: start: 20151126, end: 20151129
  18. BLINDED PLACEBO [Suspect]
     Active Substance: INVESTIGATIONAL PRODUCT
     Indication: CHRONIC OBSTRUCTIVE PULMONARY DISEASE
     Dosage: UNK, CYC
     Route: 058
     Dates: start: 20141016, end: 20150914
  19. BLINDED PLACEBO [Suspect]
     Active Substance: INVESTIGATIONAL PRODUCT
     Indication: CHRONIC OBSTRUCTIVE PULMONARY DISEASE
     Dosage: UNK, CYC
     Route: 058
     Dates: start: 20141016, end: 20150914
  20. ATROVENT UDV [Suspect]
     Active Substance: IPRATROPIUM BROMIDE
     Dosage: 2 ML, QID
     Route: 055
     Dates: start: 20151126, end: 20151129
  21. COUGH SYRUP [Suspect]
     Active Substance: DEXTROMETHORPHAN HYDROBROMIDE\GUAIFENESIN
     Indication: CHRONIC OBSTRUCTIVE PULMONARY DISEASE
     Dosage: 20 ML, QD
     Route: 048
     Dates: start: 20151128, end: 20151129
  22. OXYGEN. [Suspect]
     Active Substance: OXYGEN
     Indication: CHRONIC OBSTRUCTIVE PULMONARY DISEASE
     Dosage: 6 L/MIN, CO
     Route: 045
     Dates: start: 20151125, end: 20151130
  23. HEXAMEDIN GARGLE [Concomitant]
     Active Substance: CHLORHEXIDINE GLUCONATE
     Indication: STOMATITIS

REACTIONS (1)
  - Chronic obstructive pulmonary disease [Recovered/Resolved]

NARRATIVE: CASE EVENT DATE: 20151125
